FAERS Safety Report 12739300 (Version 2)
Quarter: 2016Q3

REPORT INFORMATION
  Report Type: Spontaneous
  Country: LV (occurrence: LV)
  Receive Date: 20160913
  Receipt Date: 20160923
  Transmission Date: 20161109
  Serious: Yes (Other)
  Sender: FDA-Public Use
  Company Number: LV-SYMPLMED PHARMACEUTICALS-2016SYMPLMED000318

PATIENT

DRUGS (2)
  1. PRESTARIUM [Suspect]
     Active Substance: PERINDOPRIL
     Indication: HYPERTENSION
     Dosage: 5 MG, QD
     Route: 048
     Dates: start: 20160810, end: 20160815
  2. TERBISIL [Concomitant]
     Indication: FUNGAL SKIN INFECTION
     Dosage: 2% OINTMENT
     Route: 061
     Dates: start: 20160810

REACTIONS (3)
  - Angina pectoris [Recovered/Resolved]
  - Chest discomfort [Recovered/Resolved]
  - Dyspnoea [Recovered/Resolved]

NARRATIVE: CASE EVENT DATE: 20160812
